FAERS Safety Report 24437199 (Version 4)
Quarter: 2024Q4

REPORT INFORMATION
  Report Type: Spontaneous
  Country: US (occurrence: US)
  Receive Date: 20241015
  Receipt Date: 20241116
  Transmission Date: 20250115
  Serious: Yes (Hospitalization, Other)
  Sender: ACCORD
  Company Number: US-Accord-450541

PATIENT
  Age: 76 Year
  Sex: Male
  Weight: 99 kg

DRUGS (15)
  1. CARBOPLATIN [Suspect]
     Active Substance: CARBOPLATIN
     Indication: Small cell lung cancer extensive stage
     Dosage: 750 MILLIGRAM, Q3W, IV DRIP
     Route: 042
     Dates: start: 20240724, end: 20240904
  2. ETOPOSIDE [Suspect]
     Active Substance: ETOPOSIDE
     Indication: Small cell lung cancer extensive stage
     Dosage: 230 MILLIGRAM, FROM DAY 1 TO DAY 3 OF EACH CYCLE, ONCE DAILY, EVERY 3 WEEKS, IV DRIP
     Route: 042
     Dates: start: 20240724, end: 20240906
  3. ALBUTEROL SULFATE [Concomitant]
     Active Substance: ALBUTEROL SULFATE
     Indication: Wheezing
     Dosage: 90 MCG/ACTUATION INHALER, 2 PUFFS, INHALATION, ONCE EVERY 4-6?HOURS AS NEEDED
  4. NORVASC [Concomitant]
     Active Substance: AMLODIPINE BESYLATE
     Indication: Hypertension
     Dosage: 5 MG, ORAL, ONCE DAILY
     Route: 048
  5. ELIQUIS [Concomitant]
     Active Substance: APIXABAN
     Indication: Atrial fibrillation
     Dosage: 5 MG, ORAL, TWICE DAILY
     Route: 048
  6. LIPITOR [Concomitant]
     Active Substance: ATORVASTATIN CALCIUM
     Indication: Product used for unknown indication
     Dosage: 80 MG, ORAL, ONCE DAILY
     Route: 048
  7. EMPAGLIFLOZIN [Concomitant]
     Active Substance: EMPAGLIFLOZIN
     Indication: Diabetes mellitus
     Dosage: 25 MG, ORAL, ONCE DAILY
     Route: 048
     Dates: end: 20240923
  8. LASIX [Concomitant]
     Active Substance: FUROSEMIDE
     Indication: Product used for unknown indication
     Dosage: 40 MG, ORAL, TWICE DAILY AS NEEDED,
     Route: 048
     Dates: end: 20240923
  9. ATIVAN [Concomitant]
     Active Substance: LORAZEPAM
     Indication: Anxiety
     Dosage: 1 MG, ORAL, ONCE EVERY 8 HOURS AS NEEDED
     Route: 048
  10. LOSARTAN POTASSIUM [Concomitant]
     Active Substance: LOSARTAN POTASSIUM
     Indication: Product used for unknown indication
     Dosage: 100 MG, ORAL, ONCE DAILY
     Route: 048
     Dates: end: 20240923
  11. GLUCOPHAGE [Concomitant]
     Active Substance: METFORMIN HYDROCHLORIDE
     Indication: Diabetes mellitus
     Dosage: 1000 MG, ORAL, TWICE DAILY WITH MEALS
     Route: 048
  12. TOPROL XL [Concomitant]
     Active Substance: METOPROLOL SUCCINATE
     Indication: Product used for unknown indication
     Dosage: ONE AND A HALF TABLETS, ORAL, ONCE DAILY
     Route: 048
  13. DELTASONE [Concomitant]
     Active Substance: PREDNISONE
     Indication: Product used for unknown indication
     Dosage: 10 MG, ORAL, ONCE DAILY
     Route: 048
  14. BUDESONIDE,GLYCOPYRROLATE,FORMOTEROL FUMARATE [Concomitant]
     Indication: Product used for unknown indication
     Dosage: INHALER, 2 PUFFS, INHALATION, TWICE DAILY
  15. PRILOSEC [Concomitant]
     Active Substance: OMEPRAZOLE MAGNESIUM
     Indication: Product used for unknown indication
     Dosage: 40 MG, ORAL, ONCE DAILY
     Route: 048

REACTIONS (10)
  - Urinary tract infection [Recovered/Resolved]
  - Dysarthria [Unknown]
  - Aphasia [Unknown]
  - Encephalopathy [Unknown]
  - Diarrhoea [Unknown]
  - Constipation [Unknown]
  - Decreased appetite [Unknown]
  - Cerebral small vessel ischaemic disease [Unknown]
  - Seizure [Unknown]
  - Transient ischaemic attack [Unknown]

NARRATIVE: CASE EVENT DATE: 20240923
